FAERS Safety Report 12537025 (Version 1)
Quarter: 2016Q3

REPORT INFORMATION
  Report Type: Spontaneous
  Country: US (occurrence: US)
  Receive Date: 20160707
  Receipt Date: 20160707
  Transmission Date: 20161109
  Serious: No
  Sender: FDA-Public Use
  Company Number: US-MISSION PHARMACAL COMPANY-1054768

PATIENT
  Age: 53 Year
  Sex: Male

DRUGS (2)
  1. EXCEDRIN (TYPE NOT SPECIFIED) [Concomitant]
     Route: 065
  2. THIOLA [Suspect]
     Active Substance: TIOPRONIN
     Indication: CYSTINURIA
     Route: 065
     Dates: start: 20160320

REACTIONS (4)
  - Drug dose omission [Unknown]
  - Headache [Not Recovered/Not Resolved]
  - Drug ineffective [None]
  - Calculus urinary [Unknown]
